FAERS Safety Report 13822132 (Version 3)
Quarter: 2017Q3

REPORT INFORMATION
  Report Type: Spontaneous
  Country: US (occurrence: US)
  Receive Date: 20170801
  Receipt Date: 20170807
  Transmission Date: 20171127
  Serious: Yes (Death, Life-Threatening, Other)
  Sender: FDA-Public Use
  Company Number: US-PFIZER INC-2017320598

PATIENT
  Age: 7 Year
  Sex: Male

DRUGS (2)
  1. EPIPEN [Suspect]
     Active Substance: EPINEPHRINE
     Indication: ASTHMA
     Dosage: TWO EPIPENS (2 DF)
     Dates: start: 20141031, end: 20141031
  2. EPIPEN [Suspect]
     Active Substance: EPINEPHRINE
     Indication: ANAPHYLACTIC REACTION

REACTIONS (6)
  - Drug ineffective [Fatal]
  - Asthma [Fatal]
  - Brain death [Fatal]
  - Hypersensitivity [Fatal]
  - Hypoxia [Unknown]
  - Cardiac arrest [Unknown]

NARRATIVE: CASE EVENT DATE: 2014
